FAERS Safety Report 9887893 (Version 2)
Quarter: 2014Q1

REPORT INFORMATION
  Report Type: Report from Study
  Country: IT (occurrence: IT)
  Receive Date: 20140211
  Receipt Date: 20140211
  Transmission Date: 20141002
  Serious: Yes (Hospitalization)
  Sender: FDA-Public Use
  Company Number: IT-SANOFI-AVENTIS-2012SA064576

PATIENT
  Age: 51 Year
  Sex: Female
  Weight: 68 kg

DRUGS (10)
  1. TERIFLUNOMIDE [Suspect]
     Indication: MULTIPLE SCLEROSIS RELAPSE
     Dosage: DOSE:1 UNIT(S)
     Route: 048
     Dates: start: 20071108
  2. FEDRAZIL [Interacting]
     Indication: CONTRACEPTION
     Dosage: DOSE:1 UNIT(S)
     Route: 048
     Dates: start: 2000, end: 20120904
  3. CIPROFLOXACIN [Concomitant]
     Indication: URINARY TRACT INFECTION
     Route: 048
     Dates: start: 20120901, end: 20120904
  4. PANTOPRAZOL WINTHROP [Concomitant]
     Indication: GASTRIC INFECTION
     Route: 048
     Dates: start: 20120901, end: 20120904
  5. SPASMEX [Concomitant]
     Dates: start: 20120827, end: 20120827
  6. TORADOL [Concomitant]
     Dates: start: 20120827, end: 20120827
  7. TORADOL [Concomitant]
     Dates: start: 20120901, end: 20120901
  8. ZANTAC [Concomitant]
     Dates: start: 20120827, end: 20120827
  9. ANTRA [Concomitant]
     Dates: start: 20120901, end: 20120901
  10. URSODEOXYCHOLIC ACID [Concomitant]
     Dates: start: 20120905

REACTIONS (1)
  - Pulmonary embolism [Recovered/Resolved]
